FAERS Safety Report 14682957 (Version 1)
Quarter: 2018Q1

REPORT INFORMATION
  Report Type: Spontaneous
  Country: DE (occurrence: DE)
  Receive Date: 20180327
  Receipt Date: 20180327
  Transmission Date: 20180509
  Serious: Yes (Other)
  Sender: FDA-Public Use
  Company Number: DE-INCYTE CORPORATION-2018IN002790

PATIENT

DRUGS (3)
  1. JAKAVI [Suspect]
     Active Substance: RUXOLITINIB
     Dosage: 15 MG,QD (DAILY DOSE: 15 MG MILLGRAMS EVERY DAY)
     Route: 048
     Dates: start: 20171219
  2. JAKAVI [Suspect]
     Active Substance: RUXOLITINIB
     Indication: MYELOPROLIFERATIVE NEOPLASM
     Dosage: 40 MG,QD (DAILY DOSE: 40 MG MILLGRAMS EVERY DAY)
     Route: 048
     Dates: start: 20140604, end: 20141207
  3. JAKAVI [Suspect]
     Active Substance: RUXOLITINIB
     Dosage: 30 MG, QD (DAILY DOSE: 30 MG MILLGRAMS EVERY DAY)
     Route: 048
     Dates: start: 20141208, end: 20171218

REACTIONS (1)
  - Neoplasm skin [Unknown]

NARRATIVE: CASE EVENT DATE: 20171001
